FAERS Safety Report 7995962-X (Version None)
Quarter: 2011Q4

REPORT INFORMATION
  Report Type: 
  Country: None (occurrence: None)
  Receive Date: 20111220
  Receipt Date: 20111216
  Transmission Date: 20120403
  Serious: Yes (Other)
  Sender: FDA-Public Use
  Company Number: US-PFIZER INC-2011286028

PATIENT
  Sex: Male
  Weight: 94.331 kg

DRUGS (4)
  1. CHANTIX [Suspect]
     Dosage: 1 MG, 2X/DAY
     Route: 048
     Dates: start: 20111001, end: 20111001
  2. LEXAPRO [Concomitant]
     Indication: ANXIETY
     Dosage: 10 MG, DAILY
  3. CHANTIX [Suspect]
     Indication: SMOKING CESSATION THERAPY
     Dosage: 0.5 MG, DAILY
     Route: 048
     Dates: start: 20111001, end: 20111001
  4. LEXAPRO [Concomitant]
     Indication: DEPRESSION

REACTIONS (5)
  - AGITATION [None]
  - DEPRESSION [None]
  - SELF INJURIOUS BEHAVIOUR [None]
  - ABNORMAL BEHAVIOUR [None]
  - AGGRESSION [None]
